FAERS Safety Report 7950810-9 (Version None)
Quarter: 2011Q4

REPORT INFORMATION
  Report Type: 
  Country: None (occurrence: None)
  Receive Date: 20111201
  Receipt Date: 20111128
  Transmission Date: 20120403
  Serious: No
  Sender: FDA-Public Use
  Company Number: US-PFIZER INC-2011290581

PATIENT
  Sex: Female
  Weight: 72.562 kg

DRUGS (2)
  1. METFORMIN [Concomitant]
     Indication: DIABETES MELLITUS
     Dosage: 500 MG, DAILY
  2. ADVIL PM [Suspect]
     Indication: INSOMNIA
     Dosage: UNK
     Dates: start: 20110101, end: 20111127

REACTIONS (2)
  - TINNITUS [None]
  - BLOOD GLUCOSE INCREASED [None]
